FAERS Safety Report 9605522 (Version 1)
Quarter: 2013Q4

REPORT INFORMATION
  Report Type: Spontaneous
  Country: US (occurrence: US)
  Receive Date: 20131008
  Receipt Date: 20131008
  Transmission Date: 20140711
  Serious: No
  Sender: FDA-Public Use
  Company Number: US-BAYER-2013-120967

PATIENT
  Sex: 0

DRUGS (2)
  1. ALEVE CAPLET [Suspect]
  2. TYLENOL [PARACETAMOL] [Concomitant]

REACTIONS (2)
  - Migraine [None]
  - Vomiting [None]
